FAERS Safety Report 21321784 (Version 2)
Quarter: 2022Q3

REPORT INFORMATION
  Report Type: Spontaneous
  Country: US (occurrence: US)
  Receive Date: 20220912
  Receipt Date: 20220923
  Transmission Date: 20221027
  Serious: Yes (Other)
  Sender: FDA-Public Use
  Company Number: US-ELI_LILLY_AND_COMPANY-US202208016021

PATIENT
  Age: 79 Year
  Sex: Male

DRUGS (2)
  1. MOUNJARO [Suspect]
     Active Substance: TIRZEPATIDE
     Indication: Product used for unknown indication
     Dosage: 2.5 MG, WEEKLY (1/W)
     Route: 058
     Dates: start: 20220810
  2. METFORMIN [Suspect]
     Active Substance: METFORMIN HYDROCHLORIDE
     Indication: Product used for unknown indication
     Dosage: UNK, BID
     Route: 065

REACTIONS (6)
  - Loss of consciousness [Unknown]
  - Diarrhoea [Not Recovered/Not Resolved]
  - Blood pressure decreased [Recovering/Resolving]
  - Pallor [Unknown]
  - Asthenia [Unknown]
  - Dizziness [Unknown]

NARRATIVE: CASE EVENT DATE: 20220826
